FAERS Safety Report 9143386 (Version 1)
Quarter: 2013Q1

REPORT INFORMATION
  Report Type: Spontaneous
  Country: US (occurrence: US)
  Receive Date: 20130306
  Receipt Date: 20130306
  Transmission Date: 20140127
  Serious: No
  Sender: FDA-Public Use
  Company Number: US-ENDO PHARMACEUTICALS INC.-OPER20120147

PATIENT
  Sex: Female

DRUGS (1)
  1. OPANA ER [Suspect]
     Indication: PAIN
     Route: 048
     Dates: end: 20120211

REACTIONS (4)
  - Nasopharyngitis [Unknown]
  - Insomnia [Unknown]
  - Blood pressure increased [Unknown]
  - Pain [Unknown]
